FAERS Safety Report 9657314 (Version 3)
Quarter: 2013Q4

REPORT INFORMATION
  Report Type: Report from Study
  Country: US (occurrence: US)
  Receive Date: 20131030
  Receipt Date: 20131120
  Transmission Date: 20140711
  Serious: Yes (Hospitalization)
  Sender: FDA-Public Use
  Company Number: US-GLAXOSMITHKLINE-A1025256G

PATIENT
  Age: 47 Year
  Sex: Female

DRUGS (4)
  1. LAPATINIB [Suspect]
     Indication: NEOPLASM
     Dosage: 1500MG PER DAY
     Route: 048
     Dates: start: 20130516
  2. BEVACIZUMAB [Suspect]
     Indication: NEOPLASM
     Dosage: 600MG PER DAY
     Route: 042
     Dates: start: 20130516
  3. WARFARIN [Suspect]
  4. ONDANSETRON [Concomitant]
     Indication: NAUSEA
     Dosage: 8MG THREE TIMES PER DAY
     Route: 042
     Dates: start: 20131018

REACTIONS (1)
  - Haemorrhage intracranial [Recovering/Resolving]
